FAERS Safety Report 14314230 (Version 1)
Quarter: 2017Q4

REPORT INFORMATION
  Report Type: Spontaneous
  Country: US (occurrence: US)
  Receive Date: 20171221
  Receipt Date: 20171221
  Transmission Date: 20180321
  Serious: Yes (Hospitalization)
  Sender: FDA-Public Use
  Company Number: None

PATIENT
  Age: 26 Year
  Sex: Female
  Weight: 48.7 kg

DRUGS (2)
  1. CARBOPLATIN. [Suspect]
     Active Substance: CARBOPLATIN
     Dates: end: 20171024
  2. PACLITAXEL. [Suspect]
     Active Substance: PACLITAXEL
     Dates: end: 20171024

REACTIONS (4)
  - Disease progression [None]
  - Tumour rupture [None]
  - Pelvic mass [None]
  - Mesenteric neoplasm [None]

NARRATIVE: CASE EVENT DATE: 20171126
